FAERS Safety Report 15286875 (Version 1)
Quarter: 2018Q3

REPORT INFORMATION
  Report Type: Spontaneous
  Country: US (occurrence: US)
  Receive Date: 20180816
  Receipt Date: 20180816
  Transmission Date: 20181010
  Serious: No
  Sender: FDA-Public Use
  Company Number: US-GLAXOSMITHKLINE-US2018141953

PATIENT
  Sex: Male

DRUGS (1)
  1. ANORO ELLIPTA [Suspect]
     Active Substance: UMECLIDINIUM BROMIDE\VILANTEROL TRIFENATATE
     Indication: CHRONIC OBSTRUCTIVE PULMONARY DISEASE
     Dosage: 1 PUFF(S), 1D

REACTIONS (7)
  - Pruritus generalised [Unknown]
  - Lip swelling [Unknown]
  - Pain [Unknown]
  - Hypersensitivity [Unknown]
  - Chapped lips [Unknown]
  - Mouth ulceration [Unknown]
  - Dysuria [Unknown]
